FAERS Safety Report 10638759 (Version 1)
Quarter: 2014Q4

REPORT INFORMATION
  Report Type: Spontaneous
  Country: US (occurrence: None)
  Receive Date: 20141204
  Receipt Date: 20141204
  Transmission Date: 20150529
  Serious: No
  Sender: FDA-Public Use
  Company Number: None

PATIENT
  Age: 56 Year
  Sex: Female

DRUGS (1)
  1. TECFIDERA [Suspect]
     Active Substance: DIMETHYL FUMARATE
     Indication: MULTIPLE SCLEROSIS
     Route: 048
     Dates: start: 20140922, end: 20141104

REACTIONS (7)
  - Flushing [None]
  - Chills [None]
  - Diarrhoea [None]
  - Abdominal pain upper [None]
  - Vomiting [None]
  - Pain [None]
  - Tenderness [None]

NARRATIVE: CASE EVENT DATE: 20141102
